FAERS Safety Report 21668230 (Version 16)
Quarter: 2023Q4

REPORT INFORMATION
  Report Type: Report from Study
  Country: CN (occurrence: CN)
  Receive Date: 20221201
  Receipt Date: 20231106
  Transmission Date: 20240109
  Serious: Yes (Death, Life-Threatening, Hospitalization, Other)
  Sender: FDA-Public Use
  Company Number: CN-TAKEDA-2022TUS079863

PATIENT
  Age: 84 Year
  Sex: Male
  Weight: 76 kg

DRUGS (38)
  1. IXAZOMIB [Suspect]
     Active Substance: IXAZOMIB
     Indication: Plasma cell myeloma
     Dosage: 3 MILLIGRAM, 1/WEEK
     Route: 048
     Dates: start: 20220916
  2. PREDNISONE [Suspect]
     Active Substance: PREDNISONE
     Indication: Plasma cell myeloma
     Dosage: 15 MILLIGRAM, QD
     Route: 048
     Dates: start: 20220916
  3. CYCLOPHOSPHAMIDE [Suspect]
     Active Substance: CYCLOPHOSPHAMIDE
     Indication: Plasma cell myeloma
     Dosage: 50 MILLIGRAM, QD
     Route: 048
     Dates: start: 20220916, end: 20221104
  4. GLUTATHIONE [Concomitant]
     Active Substance: GLUTATHIONE
     Indication: Prophylaxis
     Dosage: 1.8 GRAM, QD
     Route: 042
     Dates: start: 20220922, end: 20221031
  5. ESOMEPRAZOLE SODIUM [Concomitant]
     Active Substance: ESOMEPRAZOLE SODIUM
     Indication: Prophylaxis
     Dosage: 40 MILLIGRAM, QD
     Route: 042
     Dates: start: 20220922, end: 20221114
  6. ESOMEPRAZOLE SODIUM [Concomitant]
     Active Substance: ESOMEPRAZOLE SODIUM
     Indication: Gastrointestinal haemorrhage
  7. ACTIVATED CHARCOAL [Concomitant]
     Active Substance: ACTIVATED CHARCOAL
     Indication: Blood creatinine decreased
     Dosage: 0.9 GRAM, TID
     Route: 048
     Dates: start: 20220922, end: 20221114
  8. SODIUM BICARBONATE [Concomitant]
     Active Substance: SODIUM BICARBONATE
     Indication: Urine alkalinisation therapy
     Dosage: 1 GRAM, BID
     Route: 048
     Dates: start: 20220922, end: 20221114
  9. FELODIPINE [Concomitant]
     Active Substance: FELODIPINE
     Indication: Hypertension
     Dosage: 5 MILLIGRAM, QD
     Route: 048
     Dates: start: 20220922, end: 20221114
  10. AMBROXOL HYDROCHLORIDE [Concomitant]
     Active Substance: AMBROXOL HYDROCHLORIDE
     Indication: Productive cough
     Dosage: 60 MILLIGRAM, QD
     Route: 042
     Dates: start: 20220922, end: 20221114
  11. FLUCONAZOLE [Concomitant]
     Active Substance: FLUCONAZOLE
     Indication: Antifungal treatment
     Dosage: 0.2 GRAM, QD
     Route: 042
     Dates: start: 20221025, end: 20221103
  12. ENOXAPARIN SODIUM [Concomitant]
     Active Substance: ENOXAPARIN SODIUM
     Indication: Prophylaxis
     Dosage: 30 MILLIGRAM, QD
     Route: 058
     Dates: start: 20221020, end: 20221031
  13. MONTELUKAST SODIUM [Concomitant]
     Active Substance: MONTELUKAST SODIUM
     Indication: Asthma
     Dosage: 10 MILLIGRAM
     Route: 048
     Dates: start: 20220924, end: 20221114
  14. AMINOPHYLLINE\CHLORPHENIRAMINE MALEATE\METHOXYPHENAMINE HYDROCHLORIDE\ [Concomitant]
     Active Substance: AMINOPHYLLINE\CHLORPHENIRAMINE MALEATE\METHOXYPHENAMINE HYDROCHLORIDE\NOSCAPINE
     Indication: Asthma
     Dosage: UNK UNK, TID
     Route: 048
     Dates: start: 20220924, end: 20221114
  15. FEBUXOSTAT [Concomitant]
     Active Substance: FEBUXOSTAT
     Indication: Hyperuricaemia
     Dosage: 40 MILLIGRAM, QD
     Route: 048
     Dates: start: 20221008, end: 20221031
  16. PIPERACILLIN AND TAZOBACTAM [Concomitant]
     Active Substance: PIPERACILLIN SODIUM\TAZOBACTAM SODIUM
     Indication: Anti-infective therapy
     Dosage: 2.5 GRAM
     Route: 042
     Dates: start: 20221009, end: 20221015
  17. OXYCODONE HYDROCHLORIDE [Concomitant]
     Active Substance: OXYCODONE HYDROCHLORIDE
     Indication: Analgesic therapy
     Dosage: 10 MILLIGRAM, BID
     Route: 048
     Dates: start: 20221009, end: 20221014
  18. DEXAMETHASONE SODIUM PHOSPHATE [Concomitant]
     Active Substance: DEXAMETHASONE SODIUM PHOSPHATE
     Indication: Plasma cell myeloma
     Dosage: 2.5 MILLIGRAM, QD
     Route: 042
     Dates: start: 20221009, end: 20221031
  19. BICYCLOL [Concomitant]
     Active Substance: BICYCLOL
     Indication: Prophylaxis
     Dosage: 50 MILLIGRAM, TID
     Route: 048
     Dates: start: 20221009, end: 20221114
  20. CLOSTRIDIUM BUTYRICUM SPORES STRAIN M-55 [Concomitant]
     Active Substance: CLOSTRIDIUM BUTYRICUM SPORES STRAIN M-55
     Indication: Dysbiosis
     Dosage: 40 MILLIGRAM, TID
     Route: 048
     Dates: start: 20221009, end: 20221114
  21. ACETYLCYSTEINE [Concomitant]
     Active Substance: ACETYLCYSTEINE
     Indication: Prophylaxis
     Dosage: 0.3 GRAM, BID
     Route: 055
     Dates: start: 20221015, end: 20221103
  22. BUDESONIDE [Concomitant]
     Active Substance: BUDESONIDE
     Indication: Asthma
     Dosage: 1 MILLIGRAM, BID
     Route: 055
     Dates: start: 20221015, end: 20221103
  23. ALBUTEROL SULFATE [Concomitant]
     Active Substance: ALBUTEROL SULFATE
     Indication: Asthma
     Dosage: 5 MILLIGRAM, BID
     Route: 055
     Dates: start: 20221021, end: 20221031
  24. ISOSORBIDE MONONITRATE [Concomitant]
     Active Substance: ISOSORBIDE MONONITRATE
     Indication: Angina pectoris
     Dosage: 40 MILLIGRAM, QD
     Route: 048
     Dates: start: 20221021, end: 20221031
  25. SPIRONOLACTONE [Concomitant]
     Active Substance: SPIRONOLACTONE
     Indication: Cardiomyopathy
     Dosage: 20 MILLIGRAM, QD
     Route: 048
     Dates: start: 20221021, end: 20221031
  26. FUROSEMIDE [Concomitant]
     Active Substance: FUROSEMIDE
     Indication: Polyuria
     Dosage: 20 MILLIGRAM, QD
     Route: 048
     Dates: start: 20221021, end: 20221031
  27. DYPHYLLINE [Concomitant]
     Active Substance: DYPHYLLINE
     Indication: Asthma
     Dosage: 250 MILLIGRAM, QD
     Route: 042
     Dates: start: 20221024, end: 20221031
  28. DEXTRAN 40 AND GLUCOSE [Concomitant]
     Indication: Polyuria
     Dosage: 20 MILLIGRAM, QD
     Route: 042
     Dates: start: 20221008, end: 20221009
  29. DEXTRAN 40 AND GLUCOSE [Concomitant]
     Dosage: 20 MILLIGRAM
     Route: 042
     Dates: start: 20221012, end: 20221101
  30. CALCIUM GLUCONATE [Concomitant]
     Active Substance: CALCIUM GLUCONATE
     Indication: Mineral supplementation
     Dosage: 1 GRAM
     Route: 042
     Dates: start: 20221008, end: 20221008
  31. TORSEMIDE [Concomitant]
     Active Substance: TORSEMIDE
     Indication: Polyuria
     Dosage: 10 MILLIGRAM
     Route: 042
     Dates: start: 20221008, end: 20221026
  32. ALBUMIN HUMAN [Concomitant]
     Active Substance: ALBUMIN HUMAN
     Indication: Supplementation therapy
     Dosage: 10 GRAM, QD
     Route: 042
     Dates: start: 20221012, end: 20221020
  33. ALBUMIN HUMAN [Concomitant]
     Active Substance: ALBUMIN HUMAN
     Dosage: 10 GRAM
     Route: 042
     Dates: start: 20221022, end: 20221022
  34. ALBUMIN HUMAN [Concomitant]
     Active Substance: ALBUMIN HUMAN
     Dosage: 10 GRAM, QD
     Route: 042
     Dates: start: 20221024, end: 20221026
  35. ALBUMIN HUMAN [Concomitant]
     Active Substance: ALBUMIN HUMAN
     Dosage: 10 GRAM
     Route: 042
     Dates: start: 20221029, end: 20221029
  36. ERYTHROPOIETIN [Concomitant]
     Active Substance: ERYTHROPOIETIN
     Indication: Erythema
     Dosage: UNK
     Route: 058
     Dates: start: 20221011, end: 20221013
  37. ERYTHROPOIETIN [Concomitant]
     Active Substance: ERYTHROPOIETIN
     Dosage: UNK
     Route: 042
     Dates: start: 20221019, end: 20221019
  38. ERYTHROPOIETIN [Concomitant]
     Active Substance: ERYTHROPOIETIN
     Dosage: UNK
     Route: 058
     Dates: start: 20221027, end: 20221029

REACTIONS (4)
  - Pneumonia [Fatal]
  - Cardiac failure [Recovering/Resolving]
  - Gastrointestinal haemorrhage [Recovered/Resolved]
  - Off label use [Recovered/Resolved]

NARRATIVE: CASE EVENT DATE: 20220919
